FAERS Safety Report 5406240-7 (Version None)
Quarter: 2007Q3

REPORT INFORMATION
  Report Type: 
  Country: None (occurrence: None)
  Receive Date: 20070802
  Receipt Date: 20070802
  Transmission Date: 20080115
  Serious: Yes (Hospitalization)
  Sender: FDA-Public Use
  Company Number: None

PATIENT
  Sex: Female
  Weight: 24 kg

DRUGS (2)
  1. CYTARABINE [Suspect]
     Dosage: 7030 MG
  2. MITOXANTRONE [Suspect]
     Dosage: 40 MG

REACTIONS (29)
  - ACTIVATED PARTIAL THROMBOPLASTIN TIME PROLONGED [None]
  - ASPERGILLOSIS [None]
  - BLOOD CALCIUM DECREASED [None]
  - BLOOD FIBRINOGEN INCREASED [None]
  - BONE MARROW FAILURE [None]
  - BRONCHOPULMONARY ASPERGILLOSIS [None]
  - FLUID OVERLOAD [None]
  - FUNGAL INFECTION [None]
  - HAEMATURIA [None]
  - HEPATIC HAEMATOMA [None]
  - HEPATOMEGALY [None]
  - HYPOALBUMINAEMIA [None]
  - LIVER ABSCESS [None]
  - LUNG NEOPLASM [None]
  - MALNUTRITION [None]
  - MULTI-ORGAN DISORDER [None]
  - MYOSITIS [None]
  - PERITONEAL EFFUSION [None]
  - PLEURAL EFFUSION [None]
  - PYELONEPHRITIS [None]
  - RASH MACULO-PAPULAR [None]
  - RENAL EMBOLISM [None]
  - RENAL INFARCT [None]
  - RENAL NECROSIS [None]
  - SINUSITIS [None]
  - SPLENOMEGALY [None]
  - TACHYCARDIA [None]
  - TACHYPNOEA [None]
  - URETERIC OBSTRUCTION [None]
